FAERS Safety Report 5204216-6 (Version None)
Quarter: 2007Q1

REPORT INFORMATION
  Report Type: 
  Country: None (occurrence: None)
  Receive Date: 20070110
  Receipt Date: 20060110
  Transmission Date: 20070707
  Serious: No
  Sender: FDA-Public Use
  Company Number: US-BRISTOL-MYERS SQUIBB COMPANY-13242474

PATIENT
  Age: 8 Year
  Sex: Male
  Weight: 27 kg

DRUGS (7)
  1. ABILIFY [Suspect]
     Indication: DISSOCIATIVE DISORDER
     Route: 048
     Dates: start: 20051229
  2. ABILIFY [Suspect]
     Indication: AGGRESSION
     Route: 048
     Dates: start: 20051229
  3. SEROQUEL [Concomitant]
  4. DEPAKOTE [Concomitant]
  5. CONCERTA [Concomitant]
  6. CLONIDINE [Concomitant]
  7. COLACE [Concomitant]

REACTIONS (1)
  - ERECTILE DYSFUNCTION [None]
